FAERS Safety Report 11869621 (Version 1)
Quarter: 2015Q4

REPORT INFORMATION
  Report Type: Spontaneous
  Country: US (occurrence: US)
  Receive Date: 20151228
  Receipt Date: 20151228
  Transmission Date: 20160305
  Serious: Yes (Hospitalization, Other)
  Sender: FDA-Public Use
  Company Number: US-AMGEN-USASP2015137916

PATIENT
  Sex: Female

DRUGS (2)
  1. EPOGEN [Suspect]
     Active Substance: ERYTHROPOIETIN
     Indication: CHRONIC KIDNEY DISEASE
     Dosage: UNK
     Route: 065
     Dates: start: 2011
  2. EPOGEN [Suspect]
     Active Substance: ERYTHROPOIETIN
     Indication: NEPHROGENIC ANAEMIA
     Dosage: 9900 UNITS, 3 TIMES WEEKLY
     Route: 042
     Dates: start: 2015

REACTIONS (4)
  - Calciphylaxis [Unknown]
  - Peritoneal dialysis [Unknown]
  - Haemoglobin decreased [Unknown]
  - Haemodialysis [Unknown]

NARRATIVE: CASE EVENT DATE: 2011
